FAERS Safety Report 6599283-1 (Version None)
Quarter: 2010Q1

REPORT INFORMATION
  Report Type: 
  Country: None (occurrence: None)
  Receive Date: 20100224
  Receipt Date: 20100215
  Transmission Date: 20100710
  Serious: Yes (Other)
  Sender: FDA-Public Use
  Company Number: GB-BAYER-GB-2007-013017

PATIENT
  Age: 51 Year
  Sex: Male

DRUGS (5)
  1. CAMPATH [Suspect]
     Indication: STEM CELL TRANSPLANT
     Dosage: UNK, UNK [FORM: AMPULE]
  2. FLUDARABINE [Suspect]
     Indication: STEM CELL TRANSPLANT
     Dosage: UNK, UNK
  3. BUSULPHAN [Suspect]
     Indication: STEM CELL TRANSPLANT
  4. PENICILLIN V [Concomitant]
     Dosage: UNIT DOSE: 250 MG
     Route: 048
  5. LANSOPRAZOLE [Concomitant]
     Dosage: UNIT DOSE: 30 MG
     Route: 048

REACTIONS (1)
  - SARCOIDOSIS [None]
